FAERS Safety Report 19881623 (Version 4)
Quarter: 2021Q4

REPORT INFORMATION
  Report Type: Spontaneous
  Country: US (occurrence: US)
  Receive Date: 20210924
  Receipt Date: 20211122
  Transmission Date: 20220303
  Serious: Yes (Hospitalization)
  Sender: FDA-Public Use
  Company Number: US-SANOFI-00774986

PATIENT
  Age: 68 Year
  Sex: Female

DRUGS (1)
  1. SOLIQUA 100/33 [Suspect]
     Active Substance: INSULIN GLARGINE\LIXISENATIDE
     Indication: Type 2 diabetes mellitus
     Dosage: 52 IU, QD
     Route: 065
     Dates: start: 201903

REACTIONS (4)
  - COVID-19 [Unknown]
  - Blood glucose decreased [Unknown]
  - Extra dose administered [Unknown]
  - Device issue [Unknown]
